FAERS Safety Report 20012507 (Version 1)
Quarter: 2021Q4

REPORT INFORMATION
  Report Type: Spontaneous
  Country: ES (occurrence: ES)
  Receive Date: 20211029
  Receipt Date: 20211029
  Transmission Date: 20220303
  Serious: Yes (Other)
  Sender: FDA-Public Use
  Company Number: ES-MLMSERVICE-20211011-3152373-1

PATIENT
  Age: 16 Year
  Sex: Female

DRUGS (3)
  1. DOXORUBICIN HYDROCHLORIDE [Suspect]
     Active Substance: DOXORUBICIN HYDROCHLORIDE
     Indication: Osteosarcoma
     Dosage: 225 MG/M2, CYCLIC
     Dates: start: 201810
  2. CISPLATIN [Concomitant]
     Active Substance: CISPLATIN
     Indication: Osteosarcoma
     Dosage: 720 MG/M2, CYCLIC
     Dates: start: 201810
  3. METHOTREXATE [Concomitant]
     Active Substance: METHOTREXATE
     Indication: Osteosarcoma
     Dosage: 96 G/M2, CYCLIC
     Dates: start: 201810

REACTIONS (2)
  - Mucosal inflammation [Unknown]
  - Toxicity to various agents [Unknown]
